FAERS Safety Report 22117642 (Version 1)
Quarter: 2023Q1

REPORT INFORMATION
  Report Type: Spontaneous
  Country: FR (occurrence: None)
  Receive Date: 20230321
  Receipt Date: 20230321
  Transmission Date: 20230417
  Serious: Yes (Other)
  Sender: FDA-Public Use
  Company Number: FR-ViiV Healthcare Limited-68085

PATIENT
  Age: 58 Year
  Sex: Male

DRUGS (11)
  1. STALEVO [Suspect]
     Active Substance: CARBIDOPA\ENTACAPONE\LEVODOPA
     Indication: Parkinsonism
     Dosage: ENTACAPONE 200/LEVODOPA 100/CARBIDOPA 25 AT 6:30 A.M., 3 P.M., IN THE EVENING
     Route: 065
  2. BENSERAZIDE\LEVODOPA [Suspect]
     Active Substance: BENSERAZIDE\LEVODOPA
     Indication: Parkinsonism
     Dosage: STRENGTH: 125 MG?THRICE DAILY
     Route: 065
  3. EDURANT [Suspect]
     Active Substance: RILPIVIRINE HYDROCHLORIDE
     Indication: HIV infection
     Route: 065
  4. EZETIMIBE [Suspect]
     Active Substance: EZETIMIBE
     Indication: Product used for unknown indication
     Dosage: IN THE EVENING
     Route: 065
  5. ALPRAZOLAM [Suspect]
     Active Substance: ALPRAZOLAM
     Indication: Product used for unknown indication
     Dosage: AT BEDTIME
     Route: 065
  6. IRBESARTAN [Suspect]
     Active Substance: IRBESARTAN
     Indication: Product used for unknown indication
     Dosage: IN THE EVENING
     Route: 065
  7. VOCABRIA [Suspect]
     Active Substance: CABOTEGRAVIR SODIUM
     Indication: Product used for unknown indication
     Route: 065
  8. APOMORPHINE [Suspect]
     Active Substance: APOMORPHINE
     Indication: Parkinsonism
     Route: 065
  9. PRAVASTATIN [Suspect]
     Active Substance: PRAVASTATIN
     Indication: Product used for unknown indication
     Dosage: IN THE EVENING
     Route: 065
  10. NEBIVOLOL [Suspect]
     Active Substance: NEBIVOLOL
     Indication: Product used for unknown indication
     Dosage: IN THE MORNING
     Route: 065
  11. LEVODOPA [Suspect]
     Active Substance: LEVODOPA
     Indication: Parkinsonism
     Route: 065

REACTIONS (2)
  - Akinesia [Unknown]
  - Therapeutic response shortened [Unknown]
